FAERS Safety Report 21586607 (Version 1)
Quarter: 2022Q4

REPORT INFORMATION
  Report Type: Report from Study
  Country: US (occurrence: US)
  Receive Date: 20221113
  Receipt Date: 20221113
  Transmission Date: 20230112
  Serious: Yes (Other)
  Sender: FDA-Public Use
  Company Number: US-UNITED THERAPEUTICS-UNT-2022-026980

PATIENT
  Age: 82 Year
  Sex: Male
  Weight: 91.156 kg

DRUGS (5)
  1. TREPROSTINIL [Suspect]
     Active Substance: TREPROSTINIL
     Indication: Pulmonary arterial hypertension
     Dosage: UNK
     Route: 048
     Dates: start: 20200724
  2. TREPROSTINIL [Suspect]
     Active Substance: TREPROSTINIL
     Dosage: 5 MG, TID
     Route: 048
  3. ORENITRAM [Suspect]
     Active Substance: TREPROSTINIL
     Indication: Pulmonary arterial hypertension
     Route: 048
  4. ELIQUIS [Concomitant]
     Active Substance: APIXABAN
     Indication: Product used for unknown indication
     Route: 065
  5. DILTIAZEM [Concomitant]
     Active Substance: DILTIAZEM
     Indication: Product used for unknown indication
     Route: 065

REACTIONS (4)
  - Neuropathy peripheral [Unknown]
  - Atrial fibrillation [Unknown]
  - Pain in extremity [Unknown]
  - Photopsia [Unknown]

NARRATIVE: CASE EVENT DATE: 20221024
